FAERS Safety Report 5107277-8 (Version None)
Quarter: 2006Q3

REPORT INFORMATION
  Report Type: 
  Country: None (occurrence: None)
  Receive Date: 20060907
  Receipt Date: 20060825
  Transmission Date: 20061208
  Serious: Yes (Hospitalization)
  Sender: FDA-Public Use
  Company Number: 2006BH013091

PATIENT
  Sex: Female

DRUGS (1)
  1. TISSEEL VH KIT [Suspect]
     Indication: ABDOMINOPLASTY
     Dosage: 5 ML;

REACTIONS (4)
  - CATHETER RELATED COMPLICATION [None]
  - POST PROCEDURAL COMPLICATION [None]
  - STAPHYLOCOCCAL INFECTION [None]
  - WOUND SECRETION [None]
